FAERS Safety Report 15357560 (Version 2)
Quarter: 2018Q4

REPORT INFORMATION
  Report Type: Report from Study
  Country: US (occurrence: US)
  Receive Date: 20180906
  Receipt Date: 20181023
  Transmission Date: 20190204
  Serious: Yes (Other)
  Sender: FDA-Public Use
  Company Number: US-AMGEN-USASL2018122241

PATIENT
  Age: 54 Year
  Sex: Female

DRUGS (2)
  1. AIMOVIG [Suspect]
     Active Substance: ERENUMAB-AOOE
     Indication: MIGRAINE PROPHYLAXIS
     Dosage: 70 MG, QMO
     Route: 058
     Dates: start: 20180706, end: 20180803
  2. AIMOVIG [Suspect]
     Active Substance: ERENUMAB-AOOE
     Dosage: 140 MG, QMO
     Route: 058
     Dates: start: 20180831, end: 2018

REACTIONS (5)
  - Fatigue [Recovering/Resolving]
  - Aphasia [Recovering/Resolving]
  - Discomfort [Recovering/Resolving]
  - Drug ineffective [Unknown]
  - Sedation [Recovering/Resolving]

NARRATIVE: CASE EVENT DATE: 201807
